FAERS Safety Report 11703729 (Version 1)
Quarter: 2015Q4

REPORT INFORMATION
  Report Type: Spontaneous
  Country: US (occurrence: US)
  Receive Date: 20151106
  Receipt Date: 20151106
  Transmission Date: 20160304
  Serious: Yes (Other)
  Sender: FDA-Public Use
  Company Number: GXBR2015US002402

PATIENT
  Age: 58 Year
  Sex: Female

DRUGS (8)
  1. FLUPHENAZINE HCL TABLETS USP [Suspect]
     Active Substance: FLUPHENAZINE HYDROCHLORIDE
     Indication: BIPOLAR DISORDER
     Dosage: 5MG QAM AND 10MG QPM
     Route: 048
     Dates: end: 20151021
  2. LEVOTHYROXINE. [Concomitant]
     Active Substance: LEVOTHYROXINE
     Indication: HYPOTHYROIDISM
     Dosage: UNK DF, UNK
     Route: 065
  3. ATORVASTATIN [Concomitant]
     Active Substance: ATORVASTATIN
     Indication: HYPERLIPIDAEMIA
     Dosage: UNK DF, UNK
     Route: 065
  4. OMEGA 3 [Concomitant]
     Active Substance: OMEGA-3 FATTY ACIDS
     Indication: SUPPLEMENTATION THERAPY
     Dosage: UNK DF, UNK
     Route: 065
  5. DIVALPROEX [Concomitant]
     Active Substance: DIVALPROEX SODIUM
     Indication: MOOD SWINGS
     Dosage: 500 MG, BID
     Route: 065
  6. TRICOR [Concomitant]
     Active Substance: FENOFIBRATE
     Indication: HYPERLIPIDAEMIA
     Dosage: UNK DF, UNK
     Route: 065
  7. FLUPHENAZINE HCL TABLETS USP [Suspect]
     Active Substance: FLUPHENAZINE HYDROCHLORIDE
     Dosage: 10 MG, QPM
     Route: 048
  8. VERAPAMIL [Concomitant]
     Active Substance: VERAPAMIL HYDROCHLORIDE
     Indication: HYPERTENSION
     Dosage: UNK DF, UNK
     Route: 065

REACTIONS (10)
  - Swelling face [Recovering/Resolving]
  - Bradykinesia [Recovering/Resolving]
  - Ocular hyperaemia [Recovering/Resolving]
  - Dyskinesia [Recovering/Resolving]
  - Freezing phenomenon [Recovering/Resolving]
  - Glassy eyes [Recovering/Resolving]
  - Akathisia [Recovering/Resolving]
  - Drooling [Recovering/Resolving]
  - Gait disturbance [Recovering/Resolving]
  - Dysphonia [Recovering/Resolving]
